FAERS Safety Report 23508050 (Version 1)
Quarter: 2024Q1

REPORT INFORMATION
  Report Type: Spontaneous
  Country: BG (occurrence: None)
  Receive Date: 20240209
  Receipt Date: 20240209
  Transmission Date: 20240410
  Serious: Yes (Hospitalization, Disabling, Other)
  Sender: FDA-Public Use
  Company Number: 2024A033460

PATIENT
  Sex: Female

DRUGS (1)
  1. LYNPARZA [Suspect]
     Active Substance: OLAPARIB
     Indication: Ovarian cancer
     Route: 048

REACTIONS (5)
  - Blindness [Recovered/Resolved]
  - Neurological symptom [Recovered/Resolved]
  - Diplopia [Recovered/Resolved]
  - Hallucination, visual [Recovered/Resolved]
  - Cerebrovascular accident [Unknown]
